FAERS Safety Report 7664975-X (Version None)
Quarter: 2011Q3

REPORT INFORMATION
  Report Type: 
  Country: None (occurrence: None)
  Receive Date: 20110806
  Receipt Date: 20110223
  Transmission Date: 20111222
  Serious: No
  Sender: FDA-Public Use
  Company Number: US-ABBOTT-10P-163-0691571-00

PATIENT
  Sex: Female
  Weight: 74.456 kg

DRUGS (9)
  1. AMBIEN [Concomitant]
     Indication: PRODUCT USED FOR UNKNOWN INDICATION
  2. XANAX [Concomitant]
     Indication: PRODUCT USED FOR UNKNOWN INDICATION
  3. NIASPAN [Suspect]
     Indication: HYPERLIPIDAEMIA
     Dosage: 500MG IN AM/500MG IN PM
     Dates: start: 20081201
  4. NIASPAN [Suspect]
     Dosage: 500MG IN AM/500MG IN PM
     Dates: start: 20090501
  5. NIASPAN [Suspect]
     Dosage: 1000MG IN AM/1000MG IN PM
  6. TOPROL-XL [Concomitant]
     Indication: PRODUCT USED FOR UNKNOWN INDICATION
  7. WELCHOL [Concomitant]
     Indication: PRODUCT USED FOR UNKNOWN INDICATION
  8. ASPIRIN [Concomitant]
     Indication: PRODUCT USED FOR UNKNOWN INDICATION
  9. TICLIT [Concomitant]
     Indication: PRODUCT USED FOR UNKNOWN INDICATION

REACTIONS (9)
  - PAIN IN EXTREMITY [None]
  - ABNORMAL WEIGHT GAIN [None]
  - VOMITING [None]
  - DYSPNOEA [None]
  - CHEST PAIN [None]
  - NAUSEA [None]
  - MALAISE [None]
  - GASTRIC DISORDER [None]
  - WEIGHT DECREASED [None]
